FAERS Safety Report 13393768 (Version 1)
Quarter: 2017Q1

REPORT INFORMATION
  Report Type: Spontaneous
  Country: US (occurrence: US)
  Receive Date: 20170331
  Receipt Date: 20170331
  Transmission Date: 20170429
  Serious: Yes (Other)
  Sender: FDA-Public Use
  Company Number: US-SAOL THERAPEUTICS-0700952449

PATIENT
  Age: 49 Year
  Sex: Female

DRUGS (2)
  1. FENTANYL. [Suspect]
     Active Substance: FENTANYL
     Dosage: 1599 ?G, \DAY
     Route: 037
  2. BACLOFEN. [Suspect]
     Active Substance: BACLOFEN
     Dosage: 35.177 ?G, \DAY
     Route: 037

REACTIONS (7)
  - Device failure [Unknown]
  - Malaise [Recovered/Resolved]
  - Restless legs syndrome [Recovered/Resolved]
  - Off label use [Unknown]
  - Tinnitus [Recovered/Resolved]
  - Drug withdrawal syndrome [Unknown]
  - Pain [Unknown]

NARRATIVE: CASE EVENT DATE: 20150512
